FAERS Safety Report 23601576 (Version 2)
Quarter: 2024Q1

REPORT INFORMATION
  Report Type: Spontaneous
  Country: CN (occurrence: CN)
  Receive Date: 20240306
  Receipt Date: 20240313
  Transmission Date: 20240410
  Serious: Yes (Life-Threatening, Other)
  Sender: FDA-Public Use
  Company Number: CN-MLMSERVICE-20240222-4841882-1

PATIENT
  Age: 66 Year
  Sex: Female
  Weight: 64 kg

DRUGS (15)
  1. GEMCITABINE HYDROCHLORIDE [Suspect]
     Active Substance: GEMCITABINE HYDROCHLORIDE
     Indication: Metastases to peritoneum
     Dosage: 1000 MG/M2(ACTUAL DOSE:1600MG) DAY1,8 Q3W
     Route: 065
     Dates: start: 20201110
  2. GEMCITABINE HYDROCHLORIDE [Suspect]
     Active Substance: GEMCITABINE HYDROCHLORIDE
     Indication: Metastases to lung
  3. GEMCITABINE HYDROCHLORIDE [Suspect]
     Active Substance: GEMCITABINE HYDROCHLORIDE
     Indication: Metastases to liver
  4. GEMCITABINE HYDROCHLORIDE [Suspect]
     Active Substance: GEMCITABINE HYDROCHLORIDE
     Indication: Metastases to spinal cord
  5. GEMCITABINE HYDROCHLORIDE [Suspect]
     Active Substance: GEMCITABINE HYDROCHLORIDE
     Indication: Metastases to lymph nodes
  6. GEMCITABINE HYDROCHLORIDE [Suspect]
     Active Substance: GEMCITABINE HYDROCHLORIDE
     Indication: Metastases to pelvis
  7. GEMCITABINE HYDROCHLORIDE [Suspect]
     Active Substance: GEMCITABINE HYDROCHLORIDE
     Indication: Metastases to bone
  8. GEMCITABINE HYDROCHLORIDE [Suspect]
     Active Substance: GEMCITABINE HYDROCHLORIDE
     Indication: Cholangiocarcinoma
  9. ABRAXANE [Suspect]
     Active Substance: PACLITAXEL
     Indication: Metastases to bone
     Dosage: 130 MG/M2(ACTUAL DOSE:200MG) DAY 1,8
     Route: 065
     Dates: start: 20201110
  10. ABRAXANE [Suspect]
     Active Substance: PACLITAXEL
     Indication: Metastases to peritoneum
  11. ABRAXANE [Suspect]
     Active Substance: PACLITAXEL
     Indication: Metastases to spinal cord
  12. ABRAXANE [Suspect]
     Active Substance: PACLITAXEL
     Indication: Metastases to lung
  13. ABRAXANE [Suspect]
     Active Substance: PACLITAXEL
     Indication: Cholangiocarcinoma
  14. ABRAXANE [Suspect]
     Active Substance: PACLITAXEL
     Indication: Metastases to lymph nodes
  15. ABRAXANE [Suspect]
     Active Substance: PACLITAXEL
     Indication: Metastases to pelvis

REACTIONS (2)
  - Neutropenia [Recovered/Resolved]
  - Pyrexia [Recovered/Resolved]

NARRATIVE: CASE EVENT DATE: 20201111
